FAERS Safety Report 9744467 (Version 1)
Quarter: 2013Q4

REPORT INFORMATION
  Report Type: Spontaneous
  Country: DK (occurrence: DE)
  Receive Date: 20131210
  Receipt Date: 20131210
  Transmission Date: 20140711
  Serious: Yes (Other)
  Sender: FDA-Public Use
  Company Number: DE-FRI-1000052061

PATIENT
  Age: 0 Day
  Sex: 0
  Weight: 2.4 kg

DRUGS (1)
  1. CITALOPRAM [Suspect]
     Dosage: 20 MG
     Route: 064

REACTIONS (3)
  - Premature baby [Unknown]
  - Low birth weight baby [Unknown]
  - Foetal exposure during pregnancy [Unknown]
